FAERS Safety Report 8620705-6 (Version None)
Quarter: 2012Q3

REPORT INFORMATION
  Report Type: 
  Country: None (occurrence: None)
  Receive Date: 20120824
  Receipt Date: 20120810
  Transmission Date: 20120928
  Serious: Yes (Hospitalization, Other)
  Sender: FDA-Public Use
  Company Number: JP-VERTEX PHARMACEUTICAL INC.-AE-2012-005675

PATIENT
  Age: 54 Year
  Sex: Female

DRUGS (13)
  1. URSODIOL [Concomitant]
     Route: 048
  2. VX-950 [Suspect]
     Indication: HEPATITIS C
     Dosage: 2250 MG, QD
     Route: 048
     Dates: start: 20120215, end: 20120221
  3. VX-950 [Suspect]
     Dosage: 1500 MG, QD
     Route: 048
     Dates: start: 20120222, end: 20120508
  4. PEG-INTRON [Suspect]
     Indication: HEPATITIS C
     Route: 058
     Dates: start: 20120215
  5. LOXONIN [Concomitant]
     Dosage: 180 MG, QD
     Route: 048
     Dates: end: 20120516
  6. RIBAVIRIN [Suspect]
     Indication: HEPATITIS C
     Dosage: 400 MG, QD
     Route: 048
     Dates: start: 20120215, end: 20120228
  7. LOXONIN [Concomitant]
     Dosage: 360 MG, PRN
     Route: 048
     Dates: start: 20120215
  8. OMEPRAZOLE [Concomitant]
     Route: 048
  9. JANUVIA [Concomitant]
     Route: 048
  10. RIBAVIRIN [Suspect]
     Dosage: 200 MG, QD
     Route: 048
     Dates: start: 20120229, end: 20120612
  11. LOXONIN [Concomitant]
     Dosage: 180 MG, PRN
     Route: 048
  12. RIBAVIRIN [Suspect]
     Dosage: 400 MG, QD
     Route: 048
     Dates: start: 20120613, end: 20120619
  13. RIBAVIRIN [Suspect]
     Dosage: 600 MG, QD
     Route: 048
     Dates: start: 20120620, end: 20120731

REACTIONS (4)
  - DECREASED APPETITE [None]
  - NAUSEA [None]
  - ANXIETY DISORDER [None]
  - INSOMNIA [None]
